FAERS Safety Report 14024416 (Version 1)
Quarter: 2017Q3

REPORT INFORMATION
  Report Type: Spontaneous
  Country: FR (occurrence: FR)
  Receive Date: 20170929
  Receipt Date: 20170929
  Transmission Date: 20171128
  Serious: Yes (Hospitalization, Other)
  Sender: FDA-Public Use
  Company Number: FR-MERCK KGAA-2028228

PATIENT
  Age: 68 Year
  Sex: Male
  Weight: 75 kg

DRUGS (4)
  1. NOVOTHYROX [Suspect]
     Active Substance: LEVOTHYROXINE SODIUM
     Indication: THYROID DISORDER
     Dates: start: 201705, end: 20170914
  2. XARELTO [Concomitant]
     Active Substance: RIVAROXABAN
  3. AMIODARONE [Concomitant]
     Active Substance: AMIODARONE
  4. BISOPROLOL [Concomitant]
     Active Substance: BISOPROLOL

REACTIONS (13)
  - Fatigue [Recovering/Resolving]
  - Blood thyroid stimulating hormone increased [Unknown]
  - Dizziness [Recovering/Resolving]
  - Pruritus [Unknown]
  - Arrhythmia [Recovering/Resolving]
  - Oropharyngeal pain [Unknown]
  - Syncope [Recovering/Resolving]
  - Loss of consciousness [Unknown]
  - Hot flush [Recovering/Resolving]
  - Insomnia [Unknown]
  - Erythema [Unknown]
  - Irritability [Unknown]
  - Hypotension [Unknown]

NARRATIVE: CASE EVENT DATE: 2017
